FAERS Safety Report 22030893 (Version 3)
Quarter: 2023Q1

REPORT INFORMATION
  Report Type: Spontaneous
  Country: CH (occurrence: CH)
  Receive Date: 20230223
  Receipt Date: 20230313
  Transmission Date: 20230417
  Serious: Yes (Life-Threatening, Hospitalization, Other)
  Sender: FDA-Public Use
  Company Number: CH-VERTEX PHARMACEUTICALS-2023-002875

PATIENT
  Age: 18 Year

DRUGS (9)
  1. TRIKAFTA [Suspect]
     Active Substance: ELEXACAFTOR\IVACAFTOR\TEZACAFTOR
     Indication: Cystic fibrosis
     Dosage: UNKNOWN DOSAGE REGIMEN
     Route: 048
     Dates: start: 20191202, end: 20200811
  2. TRIKAFTA [Suspect]
     Active Substance: ELEXACAFTOR\IVACAFTOR\TEZACAFTOR
     Dosage: TWO TABLETS IN THE MORNING
     Route: 048
     Dates: start: 20210602
  3. TACROLIMUS [Suspect]
     Active Substance: TACROLIMUS
     Indication: Immunosuppression
     Dosage: 1 MG, AM
     Route: 065
  4. MYFORTIC [Suspect]
     Active Substance: MYCOPHENOLATE SODIUM
     Indication: Immunosuppression
     Dosage: 180 MG, 1 AM + 2 PM
     Route: 065
  5. PREDNISONE [Suspect]
     Active Substance: PREDNISONE
     Indication: Immunosuppression
     Dosage: 5 MG, AM
     Route: 065
  6. SPORANOX [Concomitant]
     Active Substance: ITRACONAZOLE
     Dosage: 100 MG, 1 AM + 1 PM
  7. ZITHROMAX [Concomitant]
     Active Substance: AZITHROMYCIN DIHYDRATE
  8. FUNGIZONE [Concomitant]
     Active Substance: AMPHOTERICIN B
  9. TAUROLIDINE [Concomitant]
     Active Substance: TAUROLIDINE
     Dosage: 2 X 2.5 ML

REACTIONS (9)
  - Acute respiratory failure [Unknown]
  - Pneumothorax [Unknown]
  - Pulmonary bullae rupture [Unknown]
  - Cystic fibrosis lung [Unknown]
  - Mastoiditis [Unknown]
  - Meningitis [Unknown]
  - Otitis media [Unknown]
  - Deafness unilateral [Unknown]
  - Rhinovirus infection [Not Recovered/Not Resolved]

NARRATIVE: CASE EVENT DATE: 20200701
